FAERS Safety Report 8035584-8 (Version None)
Quarter: 2012Q1

REPORT INFORMATION
  Report Type: 
  Country: None (occurrence: None)
  Receive Date: 20120110
  Receipt Date: 20120110
  Transmission Date: 20120608
  Serious: Yes (Other)
  Sender: FDA-Public Use
  Company Number: None

PATIENT
  Age: 46 Year
  Sex: Male
  Weight: 90 kg

DRUGS (2)
  1. REMICADE [Suspect]
     Indication: COLITIS ULCERATIVE
     Dosage: 5MG/KG PER 8 WEEKS INFUSION
     Dates: start: 20110914
  2. REMICADE [Suspect]
     Indication: COLITIS ULCERATIVE
     Dosage: 5MG/KG PER 8 WEEKS INFUSION
     Dates: start: 20110715

REACTIONS (6)
  - SKIN ULCER [None]
  - ARTHRALGIA [None]
  - RASH [None]
  - LUPUS-LIKE SYNDROME [None]
  - NASAL ULCER [None]
  - JOINT SWELLING [None]
